FAERS Safety Report 4827928-2 (Version None)
Quarter: 2005Q4

REPORT INFORMATION
  Report Type: 
  Country: None (occurrence: None)
  Receive Date: 20051115
  Receipt Date: 20051108
  Transmission Date: 20060501
  Serious: Yes (Other)
  Sender: FDA-Public Use
  Company Number: 2005UW16974

PATIENT
  Age: 47 Year
  Sex: Female
  Weight: 55.3 kg

DRUGS (2)
  1. ARIMIDEX [Suspect]
     Indication: BREAST CANCER
     Route: 048
     Dates: start: 20050601
  2. INDERAL [Concomitant]

REACTIONS (3)
  - CARPAL TUNNEL SYNDROME [None]
  - HYPOAESTHESIA [None]
  - PARAESTHESIA [None]
